FAERS Safety Report 10184830 (Version 2)
Quarter: 2014Q2

REPORT INFORMATION
  Report Type: Spontaneous
  Country: US (occurrence: None)
  Receive Date: 20140519
  Receipt Date: 20140617
  Transmission Date: 20141212
  Serious: Yes (Other)
  Sender: FDA-Public Use
  Company Number: 2014P1004113

PATIENT
  Age: 41 Year
  Sex: Female
  Weight: 59 kg

DRUGS (2)
  1. MYORISAN [Suspect]
     Indication: ACNE
     Dosage: 40 MG, 2X/DAY
     Dates: start: 20140326, end: 20140512
  2. ALBUTEROL [Concomitant]

REACTIONS (2)
  - Weight decreased [None]
  - Depression [None]
